FAERS Safety Report 6326131-7 (Version None)
Quarter: 2009Q3

REPORT INFORMATION
  Report Type: 
  Country: None (occurrence: None)
  Receive Date: 20090824
  Receipt Date: 20090818
  Transmission Date: 20100115
  Serious: Yes (Other)
  Sender: FDA-Public Use
  Company Number: PHHY2009KR34770

PATIENT
  Age: 48 Year
  Sex: Male

DRUGS (2)
  1. PROLEUKIN [Suspect]
     Indication: ACUTE MYELOID LEUKAEMIA
  2. WILMS TUMOUR GENE 1-SPECIFIC CYTOTOXIC T-LYMPHOCYTES [Concomitant]
     Indication: ACUTE MYELOID LEUKAEMIA
     Dosage: 2X10^7/M^2
     Route: 042

REACTIONS (2)
  - GRAFT VERSUS HOST DISEASE [None]
  - HEPATITIS ACUTE [None]
